FAERS Safety Report 15719336 (Version 1)
Quarter: 2018Q4

REPORT INFORMATION
  Report Type: Spontaneous
  Country: US (occurrence: US)
  Receive Date: 20181213
  Receipt Date: 20181213
  Transmission Date: 20190205
  Serious: Yes (Hospitalization)
  Sender: FDA-Public Use
  Company Number: US-LANNETT COMPANY, INC.-US-2018LAN001382

PATIENT
  Age: 35 Year
  Sex: Male
  Weight: 62 kg

DRUGS (8)
  1. OXYCODONE HYDROCHLORIDE. [Suspect]
     Active Substance: OXYCODONE HYDROCHLORIDE
     Indication: BREAKTHROUGH PAIN
     Dosage: 240 MME, QD (PREADMISSION)
     Route: 065
  2. OXYCODONE HYDROCHLORIDE. [Suspect]
     Active Substance: OXYCODONE HYDROCHLORIDE
     Dosage: UP TO 60 MG MME (AS NEEDED; ADDITIONAL)
     Route: 065
  3. OXYCODONE HYDROCHLORIDE. [Suspect]
     Active Substance: OXYCODONE HYDROCHLORIDE
     Dosage: 479 MME, QD
     Route: 065
  4. OXYCODONE HYDROCHLORIDE. [Suspect]
     Active Substance: OXYCODONE HYDROCHLORIDE
     Dosage: 960 MME, QD (AS NEEDED, DISCHARGE)
     Route: 065
  5. OXYCODONE HYDROCHLORIDE. [Suspect]
     Active Substance: OXYCODONE HYDROCHLORIDE
     Dosage: 388 MME, QD
     Route: 065
  6. KETAMINE [Concomitant]
     Active Substance: KETAMINE
     Indication: BREAKTHROUGH PAIN
  7. KETAMINE [Concomitant]
     Active Substance: KETAMINE
     Indication: ADJUVANT THERAPY
     Dosage: 1 ?G/KG PER MINUTE (ON HOSPITAL DAY 14)
  8. OXYCODONE HYDROCHLORIDE. [Suspect]
     Active Substance: OXYCODONE HYDROCHLORIDE
     Dosage: 720 MME, QD (DISCHARGE)
     Route: 065

REACTIONS (1)
  - Hyperaesthesia [Unknown]
